FAERS Safety Report 6192152-0 (Version None)
Quarter: 2009Q2

REPORT INFORMATION
  Report Type: 
  Country: None (occurrence: None)
  Receive Date: 20090515
  Receipt Date: 20090515
  Transmission Date: 20091009
  Serious: Yes (Other)
  Sender: FDA-Public Use
  Company Number: US-PFIZER INC-2009188397

PATIENT
  Sex: Male
  Weight: 104.31 kg

DRUGS (3)
  1. DETROL LA [Suspect]
     Indication: HYPERTONIC BLADDER
     Dates: start: 20080101
  2. BENICAR [Concomitant]
     Indication: HYPERTENSION
     Dosage: UNK
  3. LIPITOR [Concomitant]
     Dosage: UNK

REACTIONS (1)
  - BLOOD PRESSURE INCREASED [None]
